FAERS Safety Report 25127702 (Version 3)
Quarter: 2025Q3

REPORT INFORMATION
  Report Type: Report from Study
  Country: US (occurrence: US)
  Receive Date: 20250327
  Receipt Date: 20250711
  Transmission Date: 20251021
  Serious: No
  Sender: ACADIA PHARMACEUTICALS
  Company Number: US-ACADIA PHARMACEUTICALS INC.-ACA-2025-TRF-003215

PATIENT
  Sex: Female
  Weight: 32.6 kg

DRUGS (1)
  1. DAYBUE [Suspect]
     Active Substance: TROFINETIDE
     Indication: Rett syndrome
     Dosage: 20 MILLILITER, BID
     Dates: end: 202504

REACTIONS (3)
  - Gastrointestinal disorder [Not Recovered/Not Resolved]
  - Enteritis [Not Recovered/Not Resolved]
  - Prescribed underdose [Not Recovered/Not Resolved]
